FAERS Safety Report 6150401-9 (Version None)
Quarter: 2009Q2

REPORT INFORMATION
  Report Type: 
  Country: None (occurrence: None)
  Receive Date: 20090409
  Receipt Date: 20090401
  Transmission Date: 20091009
  Serious: Yes (Other)
  Sender: FDA-Public Use
  Company Number: US-ASTRAZENECA-2008UW11243

PATIENT
  Age: 29 Year
  Sex: Male
  Weight: 99.8 kg

DRUGS (13)
  1. SEROQUEL [Suspect]
     Indication: FEELING OF RELAXATION
     Route: 048
     Dates: start: 19980101, end: 19990101
  2. SEROQUEL [Suspect]
     Indication: SLEEP DISORDER
     Route: 048
     Dates: start: 19980101, end: 19990101
  3. SEROQUEL [Suspect]
     Indication: BIPOLAR DISORDER
     Route: 048
     Dates: start: 19980101, end: 19990101
  4. SEROQUEL [Suspect]
     Route: 048
     Dates: start: 20080101
  5. SEROQUEL [Suspect]
     Route: 048
     Dates: start: 20080101
  6. SEROQUEL [Suspect]
     Route: 048
     Dates: start: 20080101
  7. LITHIUM CARBONATE [Concomitant]
     Dates: start: 19890101
  8. NAVANE [Concomitant]
     Dates: start: 19880101
  9. CORGENGEN [Concomitant]
     Dates: start: 19890101
  10. TEGRETOL [Concomitant]
     Dates: start: 19890101
  11. CLOZARIL [Concomitant]
     Dates: start: 20060101
  12. HALDOL [Concomitant]
     Dates: start: 20080901
  13. STELAZINE [Concomitant]
     Dates: start: 19890101

REACTIONS (5)
  - DIABETES MELLITUS [None]
  - GASTROINTESTINAL DISORDER [None]
  - HEADACHE [None]
  - NEUROPATHY PERIPHERAL [None]
  - TOOTH DISORDER [None]
